FAERS Safety Report 5154566-7 (Version None)
Quarter: 2006Q4

REPORT INFORMATION
  Report Type: 
  Country: None (occurrence: None)
  Receive Date: 20061114
  Receipt Date: 20061030
  Transmission Date: 20070319
  Serious: Yes (Other)
  Sender: FDA-Public Use
  Company Number: GXKR2006GB06889

PATIENT
  Age: 40 Year
  Sex: Female
  Weight: 67.6 kg

DRUGS (1)
  1. METRONIDAZOLE [Suspect]
     Indication: INFECTION
     Dosage: 1 DF, TID, ORAL
     Route: 048
     Dates: start: 20060817, end: 20060817

REACTIONS (3)
  - DIZZINESS [None]
  - MALAISE [None]
  - VOMITING [None]
